FAERS Safety Report 26005844 (Version 1)
Quarter: 2025Q4

REPORT INFORMATION
  Report Type: Spontaneous
  Country: US (occurrence: None)
  Receive Date: 20251105
  Receipt Date: 20251105
  Transmission Date: 20260118
  Serious: Yes (Other)
  Sender: FDA-CTU
  Company Number: None

PATIENT
  Age: 71 Year
  Sex: Male

DRUGS (1)
  1. ADALIMUMAB [Suspect]
     Active Substance: ADALIMUMAB
     Dosage: OTHER QUANTITY : 40M/0.4ML  1 PEN ;?FREQUENCY : EVERY OTHER WEEK;?
     Route: 058

REACTIONS (4)
  - Ear, nose and throat disorder [None]
  - Oesophageal disorder [None]
  - Lymphadenopathy [None]
  - Fatigue [None]
